FAERS Safety Report 4796808-3 (Version None)
Quarter: 2005Q3

REPORT INFORMATION
  Report Type: 
  Country: None (occurrence: None)
  Receive Date: 20050916
  Receipt Date: 20050118
  Transmission Date: 20060218
  Serious: Yes (Other)
  Sender: FDA-Public Use
  Company Number: US-JNJFOC-20050104737

PATIENT
  Age: 31 Year
  Sex: Female

DRUGS (4)
  1. TOPAMAX [Suspect]
     Indication: CONVULSION
     Dosage: 100 MG, 2 IN 1 DAY, ORAL
     Route: 048
  2. EFFEXOR [Concomitant]
  3. FOLIC ACID [Concomitant]
  4. MULTI-VITAMINS [Concomitant]

REACTIONS (3)
  - BREAST DISCHARGE [None]
  - CONVULSION [None]
  - DRUG EXPOSURE DURING PREGNANCY [None]
